FAERS Safety Report 14592029 (Version 2)
Quarter: 2018Q1

REPORT INFORMATION
  Report Type: Report from Study
  Country: CA (occurrence: CA)
  Receive Date: 20180302
  Receipt Date: 20180327
  Transmission Date: 20180509
  Serious: Yes (Other)
  Sender: FDA-Public Use
  Company Number: CA-GLAXOSMITHKLINE-CA2017GSK180804

PATIENT
  Age: 43 Year
  Sex: Female

DRUGS (3)
  1. MEPOLIZUMAB [Suspect]
     Active Substance: MEPOLIZUMAB
     Indication: ASTHMA
     Dosage: 100 MG, Z (MONTHLY)
     Route: 042
     Dates: start: 20170926
  2. MEPOLIZUMAB [Suspect]
     Active Substance: MEPOLIZUMAB
     Dosage: 100 MG, Z (MONTHLY)
     Route: 042
     Dates: start: 20170926
  3. MEPOLIZUMAB [Suspect]
     Active Substance: MEPOLIZUMAB
     Dosage: 100 MG, Z (MONTHLY)
     Route: 042
     Dates: start: 20170926

REACTIONS (13)
  - Ear infection [Unknown]
  - Cough [Not Recovered/Not Resolved]
  - Dermatitis allergic [Unknown]
  - Lung infection [Recovered/Resolved]
  - Influenza [Unknown]
  - Hypoaesthesia [Unknown]
  - Sinusitis [Unknown]
  - Skin irritation [Unknown]
  - Eye irritation [Not Recovered/Not Resolved]
  - Paraesthesia [Unknown]
  - Dyspnoea [Recovered/Resolved]
  - Secretion discharge [Recovered/Resolved]
  - Burning sensation [Unknown]

NARRATIVE: CASE EVENT DATE: 201711
